FAERS Safety Report 4714340-X (Version None)
Quarter: 2005Q3

REPORT INFORMATION
  Report Type: 
  Country: None (occurrence: None)
  Receive Date: 20050713
  Receipt Date: 20050713
  Transmission Date: 20060218
  Serious: No
  Sender: FDA-Public Use
  Company Number: None

PATIENT
  Sex: Female

DRUGS (1)
  1. BUPROPION 150 (GENERIC) [Suspect]
     Dosage: BID
     Dates: start: 20040601

REACTIONS (2)
  - ANXIETY [None]
  - FATIGUE [None]
